FAERS Safety Report 9658862 (Version 2)
Quarter: 2013Q4

REPORT INFORMATION
  Report Type: Report from Study
  Country: GR (occurrence: GR)
  Receive Date: 20131030
  Receipt Date: 20131030
  Transmission Date: 20140711
  Serious: Yes (Death, Life-Threatening, Hospitalization)
  Sender: FDA-Public Use
  Company Number: GR-ABBVIE-12P-066-0979128-00

PATIENT
  Age: 66 Year
  Sex: Male
  Weight: 73 kg

DRUGS (8)
  1. ZEMPLAR [Suspect]
     Indication: RENAL FAILURE CHRONIC
     Route: 042
     Dates: start: 20120501, end: 20130520
  2. ZEMPLAR [Suspect]
     Indication: SECONDARY HYPERTHYROIDISM
  3. CLOPIDOGREL [Concomitant]
     Indication: CORONARY ARTERY DISEASE
     Route: 048
     Dates: start: 1999, end: 20130520
  4. VASTAREL [Concomitant]
     Indication: ANGIOPATHY
     Route: 048
     Dates: start: 2009
  5. SIMVASTATIN [Concomitant]
     Indication: HYPERLIPIDAEMIA
     Route: 048
     Dates: start: 1999, end: 20130520
  6. AMIODARONE [Concomitant]
     Indication: CORONARY ARTERY DISEASE
     Route: 048
     Dates: start: 2009, end: 20130520
  7. NEUROBION [Concomitant]
     Indication: RENAL FAILURE CHRONIC
     Dates: start: 2002
  8. NEUROBION [Concomitant]
     Route: 042
     Dates: end: 20130529

REACTIONS (8)
  - Cardiac arrest [Fatal]
  - Lung neoplasm malignant [Unknown]
  - Cough [Recovered/Resolved]
  - Myocardial infarction [Recovered/Resolved]
  - Pneumonia aspiration [Recovering/Resolving]
  - Grand mal convulsion [Not Recovered/Not Resolved]
  - Pneumothorax [Recovering/Resolving]
  - Loss of consciousness [Not Recovered/Not Resolved]
